FAERS Safety Report 8308290-X (Version None)
Quarter: 2012Q2

REPORT INFORMATION
  Report Type: 
  Country: None (occurrence: None)
  Receive Date: 20120424
  Receipt Date: 20120417
  Transmission Date: 20120825
  Serious: Yes (Other)
  Sender: FDA-Public Use
  Company Number: GR-PFIZER INC-2012095413

PATIENT
  Sex: Female

DRUGS (3)
  1. CLOPIDOGREL [Suspect]
     Dosage: UNK
     Dates: start: 20120101
  2. FLUCONAZOLE [Suspect]
     Dosage: 100 MG, 2X/MONTH
  3. GARAMYCIN [Concomitant]

REACTIONS (1)
  - URINARY TRACT INFECTION [None]
